FAERS Safety Report 7786541-8 (Version None)
Quarter: 2011Q3

REPORT INFORMATION
  Report Type: 
  Country: None (occurrence: None)
  Receive Date: 20110929
  Receipt Date: 20110920
  Transmission Date: 20111222
  Serious: Yes (Hospitalization)
  Sender: FDA-Public Use
  Company Number: FR-GLAXOSMITHKLINE-B0679965A

PATIENT
  Sex: Female

DRUGS (4)
  1. ACETAMINOPHEN [Concomitant]
  2. TEMODAL [Suspect]
     Indication: NEOPLASM
     Dosage: 150MGM2 CYCLIC
     Route: 048
     Dates: start: 20100726
  3. PREDNISOLONE [Concomitant]
  4. HYCAMTIN [Suspect]
     Indication: NEOPLASM
     Dosage: .75MGM2 CYCLIC
     Route: 042
     Dates: start: 20100726

REACTIONS (1)
  - FEBRILE BONE MARROW APLASIA [None]
